FAERS Safety Report 6074683-7 (Version None)
Quarter: 2009Q1

REPORT INFORMATION
  Report Type: 
  Country: None (occurrence: None)
  Receive Date: 20090121
  Receipt Date: 20080428
  Transmission Date: 20090719
  Serious: Yes (Other)
  Sender: FDA-Public Use
  Company Number: US-WYE-H03869308

PATIENT
  Age: 50 Year
  Sex: Female

DRUGS (1)
  1. PREMPRO [Suspect]
     Indication: MENSTRUAL CYCLE MANAGEMENT
     Dosage: 0.625 MG/ 5 MG DAILY, ORAL
     Route: 048
     Dates: start: 19991101, end: 20010504

REACTIONS (1)
  - BREAST CANCER [None]
